FAERS Safety Report 16840763 (Version 1)
Quarter: 2019Q3

REPORT INFORMATION
  Report Type: Spontaneous
  Country: US (occurrence: US)
  Receive Date: 20190923
  Receipt Date: 20190923
  Transmission Date: 20191005
  Serious: Yes (Death)
  Sender: FDA-Public Use
  Company Number: US-FRESENIUS KABI-FK201910396

PATIENT
  Age: 30 Day

DRUGS (1)
  1. OMEGAVEN [Suspect]
     Active Substance: FISH OIL
     Indication: PARENTERAL NUTRITION ASSOCIATED LIVER DISEASE
     Dosage: GIVEN OMEGAVEN ON 28AUG, 05MAR, AND 06MAR
     Route: 065

REACTIONS (2)
  - Necrotising enterocolitis neonatal [Fatal]
  - Hyperkalaemia [Fatal]

NARRATIVE: CASE EVENT DATE: 20190319
